FAERS Safety Report 4538776-5 (Version None)
Quarter: 2004Q4

REPORT INFORMATION
  Report Type: 
  Country: None (occurrence: None)
  Receive Date: 20041222
  Receipt Date: 20041217
  Transmission Date: 20050328
  Serious: Yes (Hospitalization, Other)
  Sender: FDA-Public Use
  Company Number: KII-2004-0014262

PATIENT
  Age: 41 Year
  Sex: Male

DRUGS (6)
  1. OXYCONTIN [Suspect]
     Dosage: ORAL
     Route: 048
  2. TRAZODONE (TRAZADONE0 [Suspect]
     Dosage: ORAL
     Route: 048
  3. METHADONE HCL [Suspect]
     Dosage: ORAL
     Route: 048
  4. RIFAMPICIN [Suspect]
     Dosage: ORAL
     Route: 048
  5. ANTIPSYCHOTICS [Suspect]
     Dosage: ORAL
     Route: 048
  6. ANTIINFLAMMATORY/ANTIRHEUMATIC PRODUCTS [Suspect]
     Dosage: ORAL
     Route: 048

REACTIONS (20)
  - AGITATION [None]
  - ALANINE AMINOTRANSFERASE INCREASED [None]
  - AREFLEXIA [None]
  - ASPARTATE AMINOTRANSFERASE INCREASED [None]
  - ATRIAL FIBRILLATION [None]
  - BLOOD ALBUMIN ABNORMAL [None]
  - BLOOD CREATINE PHOSPHOKINASE INCREASED [None]
  - BLOOD CREATININE INCREASED [None]
  - BLOOD PRESSURE SYSTOLIC INCREASED [None]
  - BLOOD UREA INCREASED [None]
  - COMA [None]
  - DYSARTHRIA [None]
  - HEART RATE INCREASED [None]
  - INTENTIONAL SELF-INJURY [None]
  - METABOLIC ALKALOSIS [None]
  - MIOSIS [None]
  - MULTIPLE DRUG OVERDOSE ACCIDENTAL [None]
  - OXYGEN SATURATION DECREASED [None]
  - RESPIRATORY RATE INCREASED [None]
  - SOMNOLENCE [None]
